FAERS Safety Report 10475469 (Version 1)
Quarter: 2014Q3

REPORT INFORMATION
  Report Type: Spontaneous
  Country: US (occurrence: None)
  Receive Date: 20140924
  Receipt Date: 20140924
  Transmission Date: 20150326
  Serious: No
  Sender: FDA-Public Use
  Company Number: None

PATIENT
  Age: 68 Year
  Sex: Male
  Weight: 81.4 kg

DRUGS (1)
  1. ROPINIROLE. [Suspect]
     Active Substance: ROPINIROLE
     Route: 048
     Dates: start: 20140612, end: 20140808

REACTIONS (2)
  - Presyncope [None]
  - Loss of consciousness [None]

NARRATIVE: CASE EVENT DATE: 20140808
